FAERS Safety Report 20156848 (Version 3)
Quarter: 2024Q4

REPORT INFORMATION
  Report Type: Spontaneous
  Country: PL (occurrence: PL)
  Receive Date: 20211207
  Receipt Date: 20241224
  Transmission Date: 20250115
  Serious: Yes (Hospitalization, Disabling, Other)
  Sender: BOEHRINGER INGELHEIM
  Company Number: PL-BAUSCH-BL-2021-036935

PATIENT
  Age: 83 Year
  Sex: Female
  Weight: 91 kg

DRUGS (181)
  1. DABIGATRAN [Suspect]
     Active Substance: DABIGATRAN
     Indication: Product used for unknown indication
     Dosage: 1-0-1 (0.5 DAY)
     Route: 065
  2. DABIGATRAN [Suspect]
     Active Substance: DABIGATRAN
     Dosage: 1-0-1
     Route: 048
  3. DONEPEZIL [Suspect]
     Active Substance: DONEPEZIL
     Indication: Product used for unknown indication
     Route: 065
  4. BENSERAZIDE\LEVODOPA [Suspect]
     Active Substance: BENSERAZIDE\LEVODOPA
     Indication: Product used for unknown indication
     Route: 065
  5. BENSERAZIDE\LEVODOPA [Suspect]
     Active Substance: BENSERAZIDE\LEVODOPA
     Route: 065
  6. QUETIAPINE [Suspect]
     Active Substance: QUETIAPINE
     Indication: Product used for unknown indication
     Route: 065
  7. GLICLAZIDE [Suspect]
     Active Substance: GLICLAZIDE
     Indication: Type 2 diabetes mellitus
     Dosage: (0.3 DAY) 1-1-1
     Route: 065
  8. GLICLAZIDE [Suspect]
     Active Substance: GLICLAZIDE
     Dosage: 3 DOSAGE FORM, QD, 1-1-1 3 DOSAGE FORM, QD, 1-1-1
     Route: 065
  9. GLICLAZIDE [Suspect]
     Active Substance: GLICLAZIDE
     Dosage: 180 MILLIGRAM, QD
     Route: 065
  10. GLICLAZIDE [Suspect]
     Active Substance: GLICLAZIDE
     Dosage: 60 MG, TID/1-1-1
     Route: 065
  11. DEXTROSE\NIKETHAMIDE [Suspect]
     Active Substance: DEXTROSE\NIKETHAMIDE
     Indication: Product used for unknown indication
  12. METFORMIN [Suspect]
     Active Substance: METFORMIN HYDROCHLORIDE
     Indication: Type 2 diabetes mellitus
     Route: 048
  13. METFORMIN [Suspect]
     Active Substance: METFORMIN HYDROCHLORIDE
     Route: 065
  14. ATORVASTATIN [Suspect]
     Active Substance: ATORVASTATIN
     Indication: Product used for unknown indication
     Dosage: 0-0-1
     Route: 065
  15. ATORVASTATIN [Suspect]
     Active Substance: ATORVASTATIN
     Indication: Product used for unknown indication
     Route: 065
  16. ATORVASTATIN [Suspect]
     Active Substance: ATORVASTATIN
     Dosage: 0-0-1; UNKNOWN
     Route: 065
  17. ATORVASTATIN [Suspect]
     Active Substance: ATORVASTATIN
     Dosage: 0-0-1
     Route: 048
  18. ATORVASTATIN [Suspect]
     Active Substance: ATORVASTATIN
     Route: 065
  19. ATORVASTATIN [Suspect]
     Active Substance: ATORVASTATIN
     Route: 065
  20. ATORVASTATIN [Suspect]
     Active Substance: ATORVASTATIN
     Route: 065
  21. ATORVASTATIN [Suspect]
     Active Substance: ATORVASTATIN
     Route: 048
  22. CITALOPRAM [Suspect]
     Active Substance: CITALOPRAM
     Indication: Depression
     Dosage: 0-0-1
     Route: 048
  23. CITALOPRAM [Suspect]
     Active Substance: CITALOPRAM
     Dosage: 1-0-0
     Route: 065
  24. METOPROLOL [Suspect]
     Active Substance: METOPROLOL
     Indication: Hypertension
     Dosage: DOSAGE SCHEDULE: 1-0-1
     Route: 065
  25. METOPROLOL [Suspect]
     Active Substance: METOPROLOL
     Indication: Type 2 diabetes mellitus
     Dosage: DOSAGE SCHEDULE: 1-0-1/2 (DOSE REDUCE); AT LEAST FOR 2 YEARS
     Route: 065
  26. METOPROLOL [Suspect]
     Active Substance: METOPROLOL
     Indication: Product used for unknown indication
     Route: 048
  27. METOPROLOL [Suspect]
     Active Substance: METOPROLOL
     Dosage: 1-0-1
     Route: 065
  28. METOPROLOL [Suspect]
     Active Substance: METOPROLOL
     Dosage: DOSAGE SCHEDULE: 1-0-1
     Route: 065
  29. METOPROLOL [Suspect]
     Active Substance: METOPROLOL
     Dosage: DOSAGE SCHEDULE: 1-0-1/2 (DOSE REDUCE); AT LEAST FOR 2 YEARS
     Route: 065
  30. METOPROLOL [Suspect]
     Active Substance: METOPROLOL
     Route: 048
  31. METOPROLOL [Suspect]
     Active Substance: METOPROLOL
     Dosage: 1-0-1
     Route: 065
  32. METOPROLOL [Suspect]
     Active Substance: METOPROLOL
  33. HYDROXYZINE [Suspect]
     Active Substance: HYDROXYZINE HYDROCHLORIDE
     Indication: Product used for unknown indication
     Dosage: DOSAGE SCHEDULE: ON DEMAND, TYPICALLY 2 X/24 H
     Route: 065
  34. HYDROXYZINE [Suspect]
     Active Substance: HYDROXYZINE HYDROCHLORIDE
     Indication: Product used for unknown indication
     Route: 065
  35. HYDROXYZINE [Suspect]
     Active Substance: HYDROXYZINE HYDROCHLORIDE
     Route: 048
  36. HYDROXYZINE [Suspect]
     Active Substance: HYDROXYZINE HYDROCHLORIDE
     Route: 065
  37. HYDROXYZINE [Suspect]
     Active Substance: HYDROXYZINE HYDROCHLORIDE
     Route: 065
  38. HYDROXYZINE [Suspect]
     Active Substance: HYDROXYZINE HYDROCHLORIDE
     Dosage: WHEN NECESSARY, ON AVERAGE 2/24 H
     Route: 065
  39. HYDROXYZINE [Suspect]
     Active Substance: HYDROXYZINE HYDROCHLORIDE
     Dosage: DOSAGE SCHEDULE: ON DEMAND, TYPICALLY 2 X/24 H
     Route: 065
  40. HYDROXYZINE [Suspect]
     Active Substance: HYDROXYZINE HYDROCHLORIDE
     Route: 065
  41. HYDROXYZINE [Suspect]
     Active Substance: HYDROXYZINE HYDROCHLORIDE
     Route: 048
  42. HYDROXYZINE [Suspect]
     Active Substance: HYDROXYZINE HYDROCHLORIDE
     Route: 065
  43. HYDROXYZINE [Suspect]
     Active Substance: HYDROXYZINE HYDROCHLORIDE
     Route: 065
  44. HYDROXYZINE [Suspect]
     Active Substance: HYDROXYZINE HYDROCHLORIDE
     Dosage: WHEN NECESSARY, ON AVERAGE 2/24 H
     Route: 065
  45. HYDROXYZINE [Suspect]
     Active Substance: HYDROXYZINE HYDROCHLORIDE
     Dosage: WHEN NECESSARY, ON AVERAGE 2/24 H
  46. RAMIPRIL [Suspect]
     Active Substance: RAMIPRIL
     Indication: Cardiac failure
     Dosage: (1-0-0, ATLEAST FOR 2 YEARS)
     Route: 048
  47. RAMIPRIL [Suspect]
     Active Substance: RAMIPRIL
     Route: 065
  48. RAMIPRIL [Suspect]
     Active Substance: RAMIPRIL
     Route: 065
  49. RAMIPRIL [Suspect]
     Active Substance: RAMIPRIL
     Route: 065
  50. ZOLPIDEM [Suspect]
     Active Substance: ZOLPIDEM TARTRATE
     Indication: Depression
     Dosage: (0-0-1 )
     Route: 065
  51. ZOLPIDEM [Suspect]
     Active Substance: ZOLPIDEM TARTRATE
     Indication: Product used for unknown indication
     Route: 065
  52. ZOLPIDEM [Suspect]
     Active Substance: ZOLPIDEM TARTRATE
     Dosage: 0-0-1
     Route: 065
  53. ZOLPIDEM [Suspect]
     Active Substance: ZOLPIDEM TARTRATE
     Route: 065
  54. ZOLPIDEM [Suspect]
     Active Substance: ZOLPIDEM TARTRATE
     Route: 048
  55. ZOLPIDEM [Suspect]
     Active Substance: ZOLPIDEM TARTRATE
     Dosage: (0-0-1 )
     Route: 065
  56. ZOLPIDEM [Suspect]
     Active Substance: ZOLPIDEM TARTRATE
     Route: 065
  57. ZOLPIDEM [Suspect]
     Active Substance: ZOLPIDEM TARTRATE
     Dosage: 0-0-1
     Route: 065
  58. ZOLPIDEM [Suspect]
     Active Substance: ZOLPIDEM TARTRATE
     Route: 065
  59. ZOLPIDEM [Suspect]
     Active Substance: ZOLPIDEM TARTRATE
     Route: 048
  60. ZOLPIDEM [Suspect]
     Active Substance: ZOLPIDEM TARTRATE
     Dosage: 1 DOSAGE FORM, QD; FREQUENCY TIME 1 DAY
  61. OMEPRAZOLE [Suspect]
     Active Substance: OMEPRAZOLE
     Indication: Product used for unknown indication
     Dosage: 1-1-0
     Route: 048
  62. OMEPRAZOLE [Suspect]
     Active Substance: OMEPRAZOLE
     Route: 065
  63. OMEPRAZOLE [Suspect]
     Active Substance: OMEPRAZOLE
     Dosage: 1-1-0
     Route: 065
  64. OMEPRAZOLE [Suspect]
     Active Substance: OMEPRAZOLE
     Route: 065
  65. ALPRAZOLAM [Suspect]
     Active Substance: ALPRAZOLAM
     Indication: Depression
     Dosage: ON DEMAND, TYPICALLY 2/24 H
     Route: 065
  66. ALPRAZOLAM [Suspect]
     Active Substance: ALPRAZOLAM
     Indication: Product used for unknown indication
     Dosage: WHEN NECESSARY, ON AVERAGE 2/24 H
     Route: 065
  67. ALPRAZOLAM [Suspect]
     Active Substance: ALPRAZOLAM
     Route: 065
  68. ALPRAZOLAM [Suspect]
     Active Substance: ALPRAZOLAM
     Route: 065
  69. ALPRAZOLAM [Suspect]
     Active Substance: ALPRAZOLAM
     Dosage: IF NEEDED
     Route: 048
  70. ALPRAZOLAM [Suspect]
     Active Substance: ALPRAZOLAM
     Dosage: QD/0,5 MG, ADHOC, USUALLY
     Route: 065
  71. ALPRAZOLAM [Suspect]
     Active Substance: ALPRAZOLAM
     Route: 065
  72. ALPRAZOLAM [Suspect]
     Active Substance: ALPRAZOLAM
     Dosage: ON DEMAND, TYPICALLY 2/24 H
     Route: 065
  73. ALPRAZOLAM [Suspect]
     Active Substance: ALPRAZOLAM
     Dosage: WHEN NECESSARY, ON AVERAGE 2/24 H
     Route: 065
  74. ALPRAZOLAM [Suspect]
     Active Substance: ALPRAZOLAM
     Route: 065
  75. ALPRAZOLAM [Suspect]
     Active Substance: ALPRAZOLAM
     Route: 065
  76. ALPRAZOLAM [Suspect]
     Active Substance: ALPRAZOLAM
     Dosage: IF NEEDED
     Route: 048
  77. ALPRAZOLAM [Suspect]
     Active Substance: ALPRAZOLAM
     Dosage: QD/0,5 MG, ADHOC, USUALLY
     Route: 065
  78. ALPRAZOLAM [Suspect]
     Active Substance: ALPRAZOLAM
     Route: 065
  79. ALPRAZOLAM [Suspect]
     Active Substance: ALPRAZOLAM
     Dosage: WHEN NECESSARY, ON AVERAGE 2/24 H
  80. ALLOPURINOL [Suspect]
     Active Substance: ALLOPURINOL
     Indication: Product used for unknown indication
     Dosage: 1-0-0
     Route: 065
  81. ALLOPURINOL [Suspect]
     Active Substance: ALLOPURINOL
     Indication: Product used for unknown indication
     Dosage: 1-0-0
     Route: 065
  82. ALLOPURINOL [Suspect]
     Active Substance: ALLOPURINOL
     Dosage: 1 DOSAGE FORM, QD; FREQUENCY 1 DAY
  83. FUROSEMIDE [Suspect]
     Active Substance: FUROSEMIDE
     Indication: Product used for unknown indication
     Dosage: 3 DF (3 TABLETS EVERY 2ND DAY). 120 MG
     Route: 065
  84. FUROSEMIDE [Suspect]
     Active Substance: FUROSEMIDE
     Indication: Product used for unknown indication
     Dosage: 3 DF (3 TABLETS EVERY 2ND DAY). 120 MG
     Route: 065
  85. FUROSEMIDE [Suspect]
     Active Substance: FUROSEMIDE
     Dosage: 3 DOSAGE FORM, EVERY 2 DAYS
     Route: 048
  86. SPIRONOLACTONE [Suspect]
     Active Substance: SPIRONOLACTONE
     Indication: Product used for unknown indication
     Dosage: 0-1-0
     Route: 065
  87. HYDROCHLOROTHIAZIDE [Suspect]
     Active Substance: HYDROCHLOROTHIAZIDE
     Indication: Product used for unknown indication
     Dosage: 1-0-0
     Route: 065
  88. HYDROCHLOROTHIAZIDE [Suspect]
     Active Substance: HYDROCHLOROTHIAZIDE
     Dosage: 1-0-0
     Route: 048
  89. HYDROCHLOROTHIAZIDE [Suspect]
     Active Substance: HYDROCHLOROTHIAZIDE
     Route: 065
  90. HYDROCHLOROTHIAZIDE [Suspect]
     Active Substance: HYDROCHLOROTHIAZIDE
     Dosage: QD
     Route: 065
  91. HYDROCHLOROTHIAZIDE [Suspect]
     Active Substance: HYDROCHLOROTHIAZIDE
     Dosage: BID
     Route: 065
  92. LEVOTHYROXINE [Suspect]
     Active Substance: LEVOTHYROXINE
     Indication: Product used for unknown indication
     Dosage: 1-0-0
     Route: 065
  93. LEVOTHYROXINE [Suspect]
     Active Substance: LEVOTHYROXINE
     Indication: Product used for unknown indication
     Dosage: 1-0-0
     Route: 065
  94. LEVOTHYROXINE [Suspect]
     Active Substance: LEVOTHYROXINE
     Dosage: 1 DOSAGE FORM, QD; FREQUENCY TIME: 1 DAY
  95. BETAHISTINE [Suspect]
     Active Substance: BETAHISTINE
     Indication: Product used for unknown indication
     Dosage: 0-1-0
     Route: 065
  96. BETAHISTINE [Suspect]
     Active Substance: BETAHISTINE
     Route: 048
  97. BETAHISTINE [Suspect]
     Active Substance: BETAHISTINE
     Route: 065
  98. BETAHISTINE [Suspect]
     Active Substance: BETAHISTINE
     Route: 065
  99. BETAHISTINE [Suspect]
     Active Substance: BETAHISTINE
     Route: 065
  100. BETAHISTINE [Suspect]
     Active Substance: BETAHISTINE
     Dosage: 0-1-0
     Route: 065
  101. BETAHISTINE [Suspect]
     Active Substance: BETAHISTINE
     Route: 048
  102. BETAHISTINE [Suspect]
     Active Substance: BETAHISTINE
     Route: 065
  103. BETAHISTINE [Suspect]
     Active Substance: BETAHISTINE
     Route: 065
  104. BETAHISTINE [Suspect]
     Active Substance: BETAHISTINE
     Route: 065
  105. TRAMADOL [Suspect]
     Active Substance: TRAMADOL
     Indication: Pain
     Route: 065
  106. TRAMADOL [Suspect]
     Active Substance: TRAMADOL
     Indication: Product used for unknown indication
     Route: 065
  107. TRAMADOL [Suspect]
     Active Substance: TRAMADOL
     Dosage: 2 DOSAGE FORM, PRN
     Route: 048
  108. TRAMADOL [Suspect]
     Active Substance: TRAMADOL
     Dosage: AS NECESSARY 2 TABLETS
     Route: 065
  109. TRAMADOL [Suspect]
     Active Substance: TRAMADOL
     Route: 065
  110. TRAMADOL [Suspect]
     Active Substance: TRAMADOL
     Route: 048
  111. TRAMADOL [Suspect]
     Active Substance: TRAMADOL
     Route: 065
  112. TRAMADOL [Suspect]
     Active Substance: TRAMADOL
     Dosage: 2 DOSAGE FORM, PRN
     Route: 048
  113. TRAMADOL [Suspect]
     Active Substance: TRAMADOL
     Dosage: AS NECESSARY 2 TABLETS
     Route: 065
  114. TRAMADOL [Suspect]
     Active Substance: TRAMADOL
     Route: 065
  115. TRAMADOL [Suspect]
     Active Substance: TRAMADOL
     Route: 048
  116. TRAMADOL [Suspect]
     Active Substance: TRAMADOL
     Dosage: 2 DOSAGE FORM, PRN (WHEN NECESSARY)
     Route: 048
  117. ACETAMINOPHEN [Suspect]
     Active Substance: ACETAMINOPHEN
     Indication: Product used for unknown indication
     Dosage: (0.5 DAY) 1-0-1
     Route: 065
  118. ACETAMINOPHEN [Suspect]
     Active Substance: ACETAMINOPHEN
     Dosage: 0-0-1
     Route: 048
  119. ACETAMINOPHEN [Suspect]
     Active Substance: ACETAMINOPHEN
     Route: 065
  120. ACETAMINOPHEN [Suspect]
     Active Substance: ACETAMINOPHEN
     Route: 065
  121. ACETAMINOPHEN [Suspect]
     Active Substance: ACETAMINOPHEN
     Dosage: (0.5 DAY) 1-0-1
     Route: 065
  122. ACETAMINOPHEN [Suspect]
     Active Substance: ACETAMINOPHEN
     Dosage: 0-0-1
     Route: 048
  123. ACETAMINOPHEN [Suspect]
     Active Substance: ACETAMINOPHEN
     Route: 065
  124. ACETAMINOPHEN [Suspect]
     Active Substance: ACETAMINOPHEN
     Route: 065
  125. POTASSIUM CHLORIDE [Suspect]
     Active Substance: POTASSIUM CHLORIDE
     Indication: Product used for unknown indication
     Route: 065
  126. POTASSIUM CHLORIDE [Suspect]
     Active Substance: POTASSIUM CHLORIDE
     Indication: Product used for unknown indication
     Route: 065
  127. POTASSIUM CHLORIDE [Suspect]
     Active Substance: POTASSIUM CHLORIDE
     Route: 065
  128. POTASSIUM CHLORIDE [Suspect]
     Active Substance: POTASSIUM CHLORIDE
     Dosage: 391 MG K+
     Route: 065
  129. POTASSIUM CHLORIDE [Suspect]
     Active Substance: POTASSIUM CHLORIDE
     Dosage: EVERY OTHER DAY
     Route: 048
  130. POTASSIUM CHLORIDE [Suspect]
     Active Substance: POTASSIUM CHLORIDE
     Route: 048
  131. POTASSIUM CHLORIDE [Suspect]
     Active Substance: POTASSIUM CHLORIDE
     Route: 065
  132. POTASSIUM CHLORIDE [Suspect]
     Active Substance: POTASSIUM CHLORIDE
     Route: 065
  133. POTASSIUM CHLORIDE [Suspect]
     Active Substance: POTASSIUM CHLORIDE
     Route: 065
  134. POTASSIUM CHLORIDE [Suspect]
     Active Substance: POTASSIUM CHLORIDE
     Dosage: 391 MG K+
     Route: 065
  135. POTASSIUM CHLORIDE [Suspect]
     Active Substance: POTASSIUM CHLORIDE
     Dosage: EVERY OTHER DAY
     Route: 048
  136. POTASSIUM CHLORIDE [Suspect]
     Active Substance: POTASSIUM CHLORIDE
     Route: 048
  137. POTASSIUM CHLORIDE [Suspect]
     Active Substance: POTASSIUM CHLORIDE
     Dosage: 1 DOSAGE FORM, EVERY 2 DAYS
  138. DEXTROSE\NIKETHAMIDE [Suspect]
     Active Substance: DEXTROSE\NIKETHAMIDE
     Indication: Product used for unknown indication
     Dosage: 1,5 + 125 MG ON DEMAND
     Route: 065
  139. DEXTROSE\NIKETHAMIDE [Suspect]
     Active Substance: DEXTROSE\NIKETHAMIDE
     Route: 065
  140. DEXTROSE\NIKETHAMIDE [Suspect]
     Active Substance: DEXTROSE\NIKETHAMIDE
     Route: 065
  141. DEXTROSE\NIKETHAMIDE [Suspect]
     Active Substance: DEXTROSE\NIKETHAMIDE
     Dosage: 1.5 MILLIGRAM (INTERMITTENTLY)
     Route: 065
  142. DEXTROSE\NIKETHAMIDE [Suspect]
     Active Substance: DEXTROSE\NIKETHAMIDE
     Dosage: UNK, PRN
     Route: 065
  143. DEXTROSE\NIKETHAMIDE [Suspect]
     Active Substance: DEXTROSE\NIKETHAMIDE
     Dosage: 1,5 + 125 MG ON DEMAND
     Route: 065
  144. DEXTROSE\NIKETHAMIDE [Suspect]
     Active Substance: DEXTROSE\NIKETHAMIDE
     Route: 065
  145. DEXTROSE\NIKETHAMIDE [Suspect]
     Active Substance: DEXTROSE\NIKETHAMIDE
     Route: 065
  146. DEXTROSE\NIKETHAMIDE [Suspect]
     Active Substance: DEXTROSE\NIKETHAMIDE
     Dosage: 1.5 MILLIGRAM (INTERMITTENTLY)
     Route: 065
  147. DEXTROSE\NIKETHAMIDE [Suspect]
     Active Substance: DEXTROSE\NIKETHAMIDE
     Dosage: UNK, PRN
     Route: 065
  148. TRAMADOL HYDROCHLORIDE [Suspect]
     Active Substance: TRAMADOL HYDROCHLORIDE
     Indication: Product used for unknown indication
     Route: 065
  149. POTASSIUM CHLORIDE\RIBOFLAVIN 5^-PHOSPHATE SODIUM [Suspect]
     Active Substance: POTASSIUM CHLORIDE\RIBOFLAVIN 5^-PHOSPHATE SODIUM
     Indication: Product used for unknown indication
     Route: 065
  150. POTASSIUM CHLORIDE\RIBOFLAVIN 5^-PHOSPHATE SODIUM [Suspect]
     Active Substance: POTASSIUM CHLORIDE\RIBOFLAVIN 5^-PHOSPHATE SODIUM
     Route: 065
  151. BETAHISTINE HYDROCHLORIDE [Suspect]
     Active Substance: BETAHISTINE HYDROCHLORIDE
     Indication: Product used for unknown indication
     Route: 065
  152. BETAHISTINE HYDROCHLORIDE [Suspect]
     Active Substance: BETAHISTINE HYDROCHLORIDE
     Route: 065
  153. METOCLOPRAMIDE [Suspect]
     Active Substance: METOCLOPRAMIDE
     Indication: Constipation
     Dosage: ON DEMAND IN THE EVENT OF CONSTIPATION (2 TABLETS), BUT FOR MANY MONTHS
     Route: 065
  154. METOCLOPRAMIDE [Suspect]
     Active Substance: METOCLOPRAMIDE
     Dosage: (INTERMITTENTLY IN CASE OF CONSTIPATION FOR MANY MONTHS)
     Route: 065
  155. METOCLOPRAMIDE [Suspect]
     Active Substance: METOCLOPRAMIDE
     Dosage: PRN
     Route: 048
  156. METOCLOPRAMIDE [Suspect]
     Active Substance: METOCLOPRAMIDE
     Dosage: AS NEEDED
     Route: 065
  157. METOCLOPRAMIDE [Suspect]
     Active Substance: METOCLOPRAMIDE
     Dosage: 10 MILLIGRAM, 2 TABLETS AS NEEDED, IN CASE OF CONSTIPATION, BUT FOR MANY MONTHS
     Route: 065
  158. METOCLOPRAMIDE [Suspect]
     Active Substance: METOCLOPRAMIDE
     Route: 065
  159. METOCLOPRAMIDE [Suspect]
     Active Substance: METOCLOPRAMIDE
     Dosage: ON DEMAND IN THE EVENT OF CONSTIPATION (2 TABLETS), BUT FOR MANY MONTHS
     Route: 065
  160. METOCLOPRAMIDE [Suspect]
     Active Substance: METOCLOPRAMIDE
     Dosage: (INTERMITTENTLY IN CASE OF CONSTIPATION FOR MANY MONTHS)
     Route: 065
  161. METOCLOPRAMIDE [Suspect]
     Active Substance: METOCLOPRAMIDE
     Dosage: PRN
     Route: 048
  162. METOCLOPRAMIDE [Suspect]
     Active Substance: METOCLOPRAMIDE
     Dosage: AS NEEDED
     Route: 065
  163. METOCLOPRAMIDE [Suspect]
     Active Substance: METOCLOPRAMIDE
     Dosage: 10 MILLIGRAM, 2 TABLETS AS NEEDED, IN CASE OF CONSTIPATION, BUT FOR MANY MONTHS
     Route: 065
  164. METOCLOPRAMIDE [Suspect]
     Active Substance: METOCLOPRAMIDE
     Route: 065
  165. METOCLOPRAMIDE [Suspect]
     Active Substance: METOCLOPRAMIDE
     Dosage: 2 DOSAGE FORM, PRN (WHEN NECESSARY FOR MANY MONTHS); AS NECESSARY
  166. ISOSORBIDE MONONITRATE [Concomitant]
     Active Substance: ISOSORBIDE MONONITRATE
     Indication: Product used for unknown indication
     Dosage: ON DEMAND, TYPICALLY 1-2 X/24 H
     Route: 065
  167. ISOSORBIDE MONONITRATE [Concomitant]
     Active Substance: ISOSORBIDE MONONITRATE
     Indication: Product used for unknown indication
     Dosage: BID
     Route: 065
  168. ISOSORBIDE MONONITRATE [Concomitant]
     Active Substance: ISOSORBIDE MONONITRATE
     Dosage: ADHOC, USUALLY,1-2 TABLETS A DAY
     Route: 065
  169. ISOSORBIDE MONONITRATE [Concomitant]
     Active Substance: ISOSORBIDE MONONITRATE
     Dosage: AS NEEDED, AV. ONCE/TWICE, DAILY
     Route: 065
  170. ISOSORBIDE MONONITRATE [Concomitant]
     Active Substance: ISOSORBIDE MONONITRATE
     Dosage: ON DEMAND, TYPICALLY 1-2 X/24 H
     Route: 065
  171. ISOSORBIDE MONONITRATE [Concomitant]
     Active Substance: ISOSORBIDE MONONITRATE
     Dosage: BID
     Route: 065
  172. ISOSORBIDE MONONITRATE [Concomitant]
     Active Substance: ISOSORBIDE MONONITRATE
     Dosage: ADHOC, USUALLY,1-2 TABLETS A DAY
     Route: 065
  173. ISOSORBIDE MONONITRATE [Concomitant]
     Active Substance: ISOSORBIDE MONONITRATE
     Dosage: AS NEEDED, AV. ONCE/TWICE, DAILY
     Route: 065
  174. ISOSORBIDE MONONITRATE [Concomitant]
     Active Substance: ISOSORBIDE MONONITRATE
     Dosage: WHEN NECESSARY, ON AVERAGE 1-2/24 H
  175. ALBUTEROL [Concomitant]
     Active Substance: ALBUTEROL
     Indication: Product used for unknown indication
     Route: 065
  176. ALBUTEROL [Concomitant]
     Active Substance: ALBUTEROL
     Route: 065
  177. ALBUTEROL [Concomitant]
     Active Substance: ALBUTEROL
     Dosage: ON DEMAND
     Route: 048
  178. TORSEMIDE [Concomitant]
     Active Substance: TORSEMIDE
     Indication: Product used for unknown indication
  179. DEXTROSE [Concomitant]
     Active Substance: DEXTROSE MONOHYDRATE
     Indication: Product used for unknown indication
  180. POTASSIUM CHLORIDE [Concomitant]
     Active Substance: POTASSIUM CHLORIDE
     Indication: Product used for unknown indication
  181. VORTIOXETINE [Concomitant]
     Active Substance: VORTIOXETINE
     Indication: Product used for unknown indication

REACTIONS (59)
  - Mobility decreased [Recovering/Resolving]
  - Fall [Recovering/Resolving]
  - Drug dependence [Unknown]
  - Melaena [Unknown]
  - Muscle rigidity [Unknown]
  - Bradykinesia [Unknown]
  - Sedation [Recovering/Resolving]
  - Motor dysfunction [Recovering/Resolving]
  - Dizziness [Recovering/Resolving]
  - Constipation [Unknown]
  - Arthralgia [Unknown]
  - Osteoporosis [Unknown]
  - Parkinsonism [Unknown]
  - Hiatus hernia [Unknown]
  - Atrioventricular block first degree [Recovering/Resolving]
  - Gastric polyps [Unknown]
  - Hyperglycaemia [Unknown]
  - Syncope [Unknown]
  - Initial insomnia [Unknown]
  - Multiple drug therapy [Unknown]
  - Hypoglycaemia [Unknown]
  - Hypotension [Recovering/Resolving]
  - Pruritus [Unknown]
  - Abdominal pain upper [Unknown]
  - Nausea [Unknown]
  - Off label use [Unknown]
  - Product administration error [Unknown]
  - Cognitive disorder [Unknown]
  - Circulatory collapse [Unknown]
  - Depression [Unknown]
  - Dementia [Unknown]
  - Urinary retention [Unknown]
  - Diabetes mellitus inadequate control [Unknown]
  - Insomnia [Unknown]
  - Dysuria [Unknown]
  - Hypotonia [Unknown]
  - Dysuria [Unknown]
  - Stupor [Unknown]
  - Neuroglycopenia [Unknown]
  - Blood cholesterol decreased [Unknown]
  - Labelled drug-drug interaction issue [Recovered/Resolved]
  - Drug interaction [Unknown]
  - Blood pressure decreased [Unknown]
  - Drug ineffective [Unknown]
  - Product use in unapproved indication [Unknown]
  - Medication error [Unknown]
  - Product use issue [Unknown]
  - Incorrect product administration duration [Unknown]
  - Blood creatinine increased [Unknown]
  - Blood urea increased [Unknown]
  - Vertigo [Unknown]
  - Hypoglycaemia [Unknown]
  - Off label use [Unknown]
  - Parkinsonism [Unknown]
  - Peripheral circulatory failure [Unknown]
  - Multiple drug therapy [Unknown]
  - Osteoporosis [Unknown]
  - Dementia [Unknown]
  - Fall [Unknown]

NARRATIVE: CASE EVENT DATE: 20210101
